FAERS Safety Report 5636144-6 (Version None)
Quarter: 2008Q1

REPORT INFORMATION
  Report Type: 
  Country: None (occurrence: None)
  Receive Date: 20080225
  Receipt Date: 20080214
  Transmission Date: 20080703
  Serious: Yes (Other)
  Sender: FDA-Public Use
  Company Number: US-BAYER-200813954NA

PATIENT
  Age: 34 Year
  Sex: Female
  Weight: 76 kg

DRUGS (2)
  1. MIRENA [Suspect]
     Indication: CONTRACEPTION
     Dates: start: 20041004, end: 20080110
  2. ASPIRIN [Concomitant]
     Route: 048

REACTIONS (4)
  - ABORTION INCOMPLETE [None]
  - AMENORRHOEA [None]
  - ANTEPARTUM HAEMORRHAGE [None]
  - PREGNANCY WITH CONTRACEPTIVE DEVICE [None]
